FAERS Safety Report 22179920 (Version 1)
Quarter: 2023Q2

REPORT INFORMATION
  Report Type: Report from Study
  Country: CA (occurrence: CA)
  Receive Date: 20230406
  Receipt Date: 20230406
  Transmission Date: 20230722
  Serious: Yes (Hospitalization, Other)
  Sender: FDA-Public Use
  Company Number: CA-BEH-2022142120

PATIENT
  Age: 60 Year
  Sex: Male
  Weight: 64.399 kg

DRUGS (9)
  1. HIZENTRA [Suspect]
     Active Substance: HUMAN IMMUNOGLOBULIN G
     Indication: Secondary immunodeficiency
     Dosage: 7 GRAM, QW
     Route: 065
     Dates: start: 20181203
  2. IMBRUVICA [Concomitant]
     Active Substance: IBRUTINIB
  3. SYNTHROID [Concomitant]
     Active Substance: LEVOTHYROXINE SODIUM
  4. VALACYCLOVIR [Concomitant]
     Active Substance: VALACYCLOVIR HYDROCHLORIDE
  5. CARBIDOPA\LEVODOPA [Concomitant]
     Active Substance: CARBIDOPA\LEVODOPA
  6. DIAZEPAM [Concomitant]
     Active Substance: DIAZEPAM
  7. ASPIRIN [Concomitant]
     Active Substance: ASPIRIN
  8. ATORVASTATIN [Concomitant]
     Active Substance: ATORVASTATIN
  9. COMBIGAN [Concomitant]
     Active Substance: BRIMONIDINE TARTRATE\TIMOLOL MALEATE
     Dosage: 7 UNK

REACTIONS (9)
  - Thrombotic stroke [Unknown]
  - Glaucoma [Unknown]
  - Infusion site induration [Unknown]
  - Infusion site pain [Unknown]
  - Memory impairment [Unknown]
  - Sunburn [Unknown]
  - Arrhythmia [Unknown]
  - Drug interaction [Unknown]
  - Cerebrovascular accident [Unknown]

NARRATIVE: CASE EVENT DATE: 20210101
